FAERS Safety Report 17227108 (Version 1)
Quarter: 2020Q1

REPORT INFORMATION
  Report Type: Report from Study
  Country: US (occurrence: US)
  Receive Date: 20200103
  Receipt Date: 20200103
  Transmission Date: 20200409
  Serious: Yes (Other)
  Sender: FDA-Public Use
  Company Number: US-ASTELLAS-2019US030619

PATIENT
  Age: 74 Year
  Sex: Male

DRUGS (1)
  1. ENZALUTAMIDE [Suspect]
     Active Substance: ENZALUTAMIDE
     Indication: PROSTATE CANCER
     Route: 048
     Dates: start: 201904

REACTIONS (5)
  - Fatigue [Unknown]
  - Nodule [Unknown]
  - Hot flush [Unknown]
  - Rectal haemorrhage [Unknown]
  - Dizziness [Unknown]

NARRATIVE: CASE EVENT DATE: 20190725
